FAERS Safety Report 7764791 (Version 2)
Quarter: 2012Q4

REPORT INFORMATION
  Report Type: 
  Country: BE (occurrence: BE)
  Receive Date: 20110119
  Receipt Date: 20120911
  Transmission Date: 20130627
  Serious: Yes (Death, Other)
  Sender: FDA-Public Use
  Company Number: BE-RANBAXY-2010R1-40153

PATIENT
  Age: 45 Year
  Sex: Male

DRUGS (16)
  1. FLUCONAZOLE [Suspect]
     Indication: FUNGAL OESOPHAGITIS
     Dosage: 50 mg, qd
     Route: 048
  2. LOPINAVIR\RITONAVIR [Interacting]
     Indication: ANTIRETROVIRAL THERAPY
     Dosage: 600/150mg bid
     Route: 065
  3. TACROLIMUS [Interacting]
     Indication: IMMUNOSUPPRESSANT DRUG THERAPY
     Dosage: 0.2 mg/kg, qd
     Route: 065
  4. TACROLIMUS [Interacting]
     Dosage: 0.5 mg, single
     Route: 065
  5. TACROLIMUS [Interacting]
     Dosage: 0.5 mg, 1/week
     Route: 065
  6. TACROLIMUS [Interacting]
     Dosage: 0.5 mg, every 8 days
     Route: 065
  7. CELLCEPT [Concomitant]
     Indication: IMMUNOSUPPRESSANT DRUG THERAPY
     Dosage: 500mg bid
     Route: 065
  8. PREDNISOLONE [Concomitant]
     Indication: IMMUNOSUPPRESSANT DRUG THERAPY
     Dosage: UNK
     Route: 065
  9. LAMIVUDINE [Concomitant]
     Indication: ANTIRETROVIRAL THERAPY
     Dosage: 300mg qd
     Route: 065
  10. RALTEGRAVIR [Concomitant]
     Indication: ANTIRETROVIRAL THERAPY
     Dosage: 400mg bid
     Route: 065
  11. NEVIRAPINE [Concomitant]
     Indication: ANTIRETROVIRAL THERAPY
     Dosage: 200 mg bid
     Route: 065
  12. ASPIRIN [Concomitant]
     Indication: PRODUCT USED FOR UNKNOWN INDICATION
     Dosage: UNK
     Route: 065
  13. COTRIMOXAZOLE [Concomitant]
     Indication: PRODUCT USED FOR UNKNOWN INDICATION
     Dosage: UNK
     Route: 065
  14. ACICLOVIR [Concomitant]
     Indication: HERPES OESOPHAGITIS
     Dosage: 800mg bid
     Route: 065
  15. PANTOPRAZOLE [Concomitant]
     Indication: HERPES OESOPHAGITIS
     Dosage: 40 mg, qd
     Route: 065
  16. PANTOPRAZOLE [Concomitant]
     Indication: FUNGAL OESOPHAGITIS

REACTIONS (2)
  - Drug interaction [Unknown]
  - Immunosuppressant drug level increased [Unknown]
